FAERS Safety Report 5961031-3 (Version None)
Quarter: 2008Q4

REPORT INFORMATION
  Report Type: 
  Country: None (occurrence: None)
  Receive Date: 20081121
  Receipt Date: 20080714
  Transmission Date: 20090506
  Serious: No
  Sender: FDA-Public Use
  Company Number: A0738047A

PATIENT
  Sex: Female

DRUGS (3)
  1. DIGOXIN [Suspect]
     Indication: DRUG USE FOR UNKNOWN INDICATION
     Dosage: .125MG UNKNOWN
  2. ADVAIR DISKUS 100/50 [Concomitant]
     Indication: DRUG USE FOR UNKNOWN INDICATION
  3. RYTHMOL [Concomitant]
     Indication: DRUG USE FOR UNKNOWN INDICATION

REACTIONS (3)
  - GASTROOESOPHAGEAL REFLUX DISEASE [None]
  - MALAISE [None]
  - NERVE INJURY [None]
